FAERS Safety Report 17663088 (Version 1)
Quarter: 2020Q2

REPORT INFORMATION
  Report Type: Spontaneous
  Country: CN (occurrence: CN)
  Receive Date: 20200414
  Receipt Date: 20200414
  Transmission Date: 20200713
  Serious: Yes (Death, Other)
  Sender: FDA-Public Use
  Company Number: CN-SUN PHARMACEUTICAL INDUSTRIES LTD-2020R1-243121

PATIENT
  Age: 63 Year
  Sex: Male

DRUGS (1)
  1. ERLOTINIB [Suspect]
     Active Substance: ERLOTINIB
     Indication: METASTATIC NEOPLASM
     Dosage: 150 MILLIGRAM, QD
     Route: 065

REACTIONS (5)
  - Therapeutic product effect incomplete [Unknown]
  - Altered state of consciousness [Unknown]
  - Communication disorder [Unknown]
  - Seizure [Unknown]
  - Death [Fatal]
